FAERS Safety Report 12395431 (Version 1)
Quarter: 2016Q2

REPORT INFORMATION
  Report Type: Spontaneous
  Country: US (occurrence: US)
  Receive Date: 20160523
  Receipt Date: 20160523
  Transmission Date: 20160815
  Serious: Yes (Other)
  Sender: FDA-Public Use
  Company Number: US-009507513-1605USA007801

PATIENT
  Age: 33 Year
  Sex: Female
  Weight: 72.56 kg

DRUGS (3)
  1. XANAX [Concomitant]
     Active Substance: ALPRAZOLAM
     Dosage: UNK
  2. LEXAPRO [Concomitant]
     Active Substance: ESCITALOPRAM OXALATE
  3. NUVARING [Suspect]
     Active Substance: ETHINYL ESTRADIOL\ETONOGESTREL
     Indication: CONTRACEPTION
     Dosage: 1 RING FOR 3 WEEKS, 1 WEEK OUT
     Route: 067
     Dates: start: 2009, end: 201604

REACTIONS (4)
  - Pregnancy with contraceptive device [Unknown]
  - Withdrawal bleed [Unknown]
  - Unintended pregnancy [Unknown]
  - Withdrawal bleed [Recovered/Resolved]

NARRATIVE: CASE EVENT DATE: 2016
